FAERS Safety Report 6655123-3 (Version None)
Quarter: 2010Q1

REPORT INFORMATION
  Report Type: 
  Country: None (occurrence: None)
  Receive Date: 20100329
  Receipt Date: 20100317
  Transmission Date: 20100710
  Serious: Yes (Hospitalization)
  Sender: FDA-Public Use
  Company Number: GB-NOVOPROD-305782

PATIENT
  Sex: Female
  Weight: 97.5 kg

DRUGS (6)
  1. LIRAGLUTIDE FLEXPEN [Suspect]
     Indication: TYPE 2 DIABETES MELLITUS
     Dosage: 1.8 MG, QD
     Route: 058
  2. NAPROXEN [Concomitant]
     Indication: BACK PAIN
     Dosage: 250 MG, UNK
     Route: 048
     Dates: start: 20000201
  3. ACETAMINOPHEN AND CODEINE PHOSPHATE [Concomitant]
     Indication: BACK PAIN
     Dosage: 30/500MG
     Route: 048
     Dates: start: 20070101
  4. LEVOTHYROXINE SODIUM [Concomitant]
     Indication: HYPOTHYROIDISM
     Dosage: 200 MG, QD
     Route: 048
     Dates: start: 19970101
  5. LORATADINE [Concomitant]
     Indication: SEASONAL ALLERGY
     Dosage: 10 MG, UNK
     Route: 048
     Dates: start: 20030101
  6. QVAR 40 [Concomitant]
     Indication: ASTHMA
     Dosage: 2 PUFF, UNK
     Route: 055
     Dates: start: 19830101

REACTIONS (1)
  - ABDOMINAL WALL ABSCESS [None]
